FAERS Safety Report 14007802 (Version 2)
Quarter: 2017Q3

REPORT INFORMATION
  Report Type: Spontaneous
  Country: AU (occurrence: AU)
  Receive Date: 20170925
  Receipt Date: 20170929
  Transmission Date: 20171128
  Serious: Yes (Other)
  Sender: FDA-Public Use
  Company Number: AU-TEVA-809543ISR

PATIENT
  Sex: Male

DRUGS (1)
  1. ACTONEL EC COMBI D (RISEDRONATE SODIUM, EDETATE DISODIUM, CALCIUM CARBONATE, VITAMIN D3) TABLET, 35MG [Suspect]
     Active Substance: CALCIUM CARBONATE\CHOLECALCIFEROL\RISEDRONATE SODIUM
     Dosage: 1 DOSAGE FORM = RISEDRONATE SODIUM 35MG + CALCIUM CARBONATE 2500MG + COLECALCIFEROL 22 MICROGRAM
     Route: 048

REACTIONS (1)
  - Osteonecrosis [Unknown]
